FAERS Safety Report 9416203 (Version 1)
Quarter: 2013Q3

REPORT INFORMATION
  Report Type: Spontaneous
  Country: JP (occurrence: None)
  Receive Date: 20130716
  Receipt Date: 20130716
  Transmission Date: 20140515
  Serious: Yes (Other)
  Sender: FDA-Public Use
  Company Number: 087-50794-13062977

PATIENT
  Age: 62 Year
  Sex: Male

DRUGS (2)
  1. VIDAZA [Suspect]
     Indication: MYELODYSPLASTIC SYNDROME
     Dosage: 112MG, 1 IN 1 D
     Route: 042
     Dates: start: 20121001
  2. CYLOCIDE (CYTARABINE [Concomitant]

REACTIONS (1)
  - Hepatitis B [None]
